FAERS Safety Report 9288205 (Version 2)
Quarter: 2013Q2

REPORT INFORMATION
  Report Type: Other
  Country: DK (occurrence: IT)
  Receive Date: 20130514
  Receipt Date: 20130528
  Transmission Date: 20140414
  Serious: Yes (Death)
  Sender: FDA-Public Use
  Company Number: IT-FRI-1000045087

PATIENT
  Age: 26 Year
  Sex: Male

DRUGS (3)
  1. CITALOPRAM [Suspect]
     Indication: DRUG ABUSE
     Dosage: 40 MG/ML, 1 BOTTLE A DAY
     Route: 048
  2. HEROIN [Suspect]
  3. CAFFEINE [Suspect]

REACTIONS (3)
  - Drug abuser [Fatal]
  - Toxicity to various agents [Fatal]
  - Toxicity to various agents [Fatal]
